FAERS Safety Report 6663978-1 (Version None)
Quarter: 2010Q2

REPORT INFORMATION
  Report Type: 
  Country: None (occurrence: None)
  Receive Date: 20100401
  Receipt Date: 20100324
  Transmission Date: 20101027
  Serious: Yes (Hospitalization)
  Sender: FDA-Public Use
  Company Number: PH-BAXTER-2010BH008209

PATIENT
  Age: 41 Year
  Sex: Male

DRUGS (1)
  1. DIANEAL [Suspect]
     Indication: RENAL FAILURE CHRONIC
     Route: 033

REACTIONS (6)
  - CATHETER SITE INFECTION [None]
  - DEVICE RELATED INFECTION [None]
  - IMPAIRED HEALING [None]
  - MALNUTRITION [None]
  - SKIN INFECTION [None]
  - WOUND DEHISCENCE [None]
